FAERS Safety Report 19059001 (Version 1)
Quarter: 2021Q1

REPORT INFORMATION
  Report Type: Spontaneous
  Country: FR (occurrence: FR)
  Receive Date: 20210325
  Receipt Date: 20210325
  Transmission Date: 20210420
  Serious: Yes (Other)
  Sender: FDA-Public Use
  Company Number: FR-TEVA-2021-FR-1893011

PATIENT
  Age: 79 Year
  Sex: Female
  Weight: 60 kg

DRUGS (6)
  1. LEVOTHYROX 100 MICROGRAMMES, COMPRIME SECABLE [Concomitant]
     Active Substance: LEVOTHYROXINE
     Dosage: SCORED TABLET, UNIT DOSE: 100 MCG
     Route: 048
  2. CARDENSIEL 1,25 MG, COMPRIME PELLICULE [Concomitant]
     Active Substance: BISOPROLOL FUMARATE
     Dosage: UNIT DOSE: 1.25 MILLIGRAM
     Route: 048
  3. PRAVASTATINE SODIQUE [Suspect]
     Active Substance: PRAVASTATIN SODIUM
     Indication: HYPERCHOLESTEROLAEMIA
     Dosage: UNIT DOSE: 10 MILLIGRAM
     Route: 048
     Dates: start: 20180901, end: 20201210
  4. INFLUVAC TETRA [Suspect]
     Active Substance: INFLUENZA VIRUS VACCINE QUADRIVALENT TYPE A+B
     Indication: INFLUENZA IMMUNISATION
     Dosage: UNIT DOSE: 1 DOSAGE FORM
     Route: 030
     Dates: start: 20201126
  5. CANDESARTAN CILEXETIL. [Concomitant]
     Active Substance: CANDESARTAN CILEXETIL
     Dosage: UNIT DOSE: 8 MILLIGRAM
     Route: 048
     Dates: start: 20161001, end: 20201016
  6. FUROSEMIDE. [Concomitant]
     Active Substance: FUROSEMIDE
     Dosage: UNIT DOSE: 60 MILLIGRAM
     Route: 048

REACTIONS (2)
  - Rash papular [Recovering/Resolving]
  - Neutropenia [Recovered/Resolved]

NARRATIVE: CASE EVENT DATE: 20201109
